FAERS Safety Report 4525531-5 (Version None)
Quarter: 2005Q1

REPORT INFORMATION
  Report Type: 
  Country: None (occurrence: None)
  Receive Date: 20041116
  Receipt Date: 20040927
  Transmission Date: 20050727
  Serious: No
  Sender: FDA-Public Use
  Company Number: S04-USA-06418-01

PATIENT
  Age: 66 Year
  Sex: Male

DRUGS (9)
  1. NAMENDA [Suspect]
     Indication: DEMENTIA ALZHEIMER'S TYPE
     Dosage: 5 MG QD PO
     Route: 048
     Dates: start: 20040905, end: 20040908
  2. NAMENDA [Suspect]
     Indication: DEMENTIA ALZHEIMER'S TYPE
     Dosage: 5 MG QD PO
     Route: 048
     Dates: start: 20040912, end: 20040918
  3. NAMENDA [Suspect]
     Indication: DEMENTIA ALZHEIMER'S TYPE
     Dosage: 5 MG QD PO
     Route: 048
     Dates: start: 20040922
  4. ARICEPT [Concomitant]
  5. VITAMIN E [Concomitant]
  6. PREVACID [Concomitant]
  7. ZOCOR [Concomitant]
  8. MULTI-VITAMIN [Concomitant]
  9. VITAMIN C [Concomitant]

REACTIONS (2)
  - RASH [None]
  - URTICARIA [None]
